FAERS Safety Report 8990048 (Version 3)
Quarter: 2013Q1

REPORT INFORMATION
  Report Type: Spontaneous
  Country: GB (occurrence: GB)
  Receive Date: 20121228
  Receipt Date: 20130124
  Transmission Date: 20140127
  Serious: Yes (Other)
  Sender: FDA-Public Use
  Company Number: GB-TEVA-377057ISR

PATIENT
  Age: 63 Year
  Sex: Female

DRUGS (4)
  1. LANSOPRAZOLE [Suspect]
     Indication: HYPERCHLORHYDRIA
     Dosage: 30 MILLIGRAM DAILY;
     Route: 048
     Dates: start: 2002, end: 20121106
  2. DIOVANE [Concomitant]
     Indication: BLOOD PRESSURE
     Dosage: 120 MILLIGRAM DAILY;
  3. INDAPAMIDE [Concomitant]
     Indication: BLOOD PRESSURE
     Dosage: 2.5 MILLIGRAM DAILY;
  4. BENDROFLUAZIDE [Concomitant]
     Indication: BLOOD PRESSURE

REACTIONS (4)
  - Loss of consciousness [Recovered/Resolved]
  - Blood pressure increased [Recovered/Resolved]
  - Visual impairment [Recovered/Resolved]
  - Fall [Unknown]
